FAERS Safety Report 14115647 (Version 1)
Quarter: 2017Q4

REPORT INFORMATION
  Report Type: Report from Study
  Country: US (occurrence: BR)
  Receive Date: 20171023
  Receipt Date: 20171023
  Transmission Date: 20180321
  Serious: Yes (Death, Other)
  Sender: FDA-Public Use
  Company Number: US-SUNOVION-2017SUN004560

PATIENT
  Age: 69 Year
  Sex: Female
  Weight: 76 kg

DRUGS (1)
  1. INDACATEROL AND GLYCOPYRROLATE [Suspect]
     Active Substance: GLYCOPYRROLATE\INDACATEROL MALEATE
     Indication: CHRONIC OBSTRUCTIVE PULMONARY DISEASE
     Dosage: ULTIBRO BREEZHALER (GLYCOPYRRONIUM BROMIDE 50 UG/ INDACATEROL 110 MCG) CAPSULE, 1 DF, QD VIA INHALAT
     Route: 055
     Dates: start: 20170707

REACTIONS (6)
  - Productive cough [Unknown]
  - Death [Fatal]
  - Syncope [Unknown]
  - Influenza [Unknown]
  - Dyspnoea [Unknown]
  - Somnolence [Unknown]

NARRATIVE: CASE EVENT DATE: 20170930
